FAERS Safety Report 9670352 (Version 3)
Quarter: 2013Q4

REPORT INFORMATION
  Report Type: Spontaneous
  Country: JP (occurrence: JP)
  Receive Date: 20131105
  Receipt Date: 20131203
  Transmission Date: 20140711
  Serious: Yes (Death, Other)
  Sender: FDA-Public Use
  Company Number: PHHY2013JP120820

PATIENT
  Age: 63 Year
  Sex: Female

DRUGS (4)
  1. NEORAL [Suspect]
     Indication: RENAL TRANSPLANT
     Dosage: 75 MG, DAILY
     Route: 048
  2. NEORAL [Suspect]
     Dosage: 50 MG, DAILY
     Route: 048
  3. CELLCEPT [Concomitant]
     Indication: RENAL TRANSPLANT
     Route: 048
  4. MEDROL [Concomitant]
     Indication: RENAL TRANSPLANT

REACTIONS (7)
  - Pneumocystis jirovecii pneumonia [Fatal]
  - Renal impairment [Unknown]
  - Blood creatinine increased [Unknown]
  - Azotaemia [Unknown]
  - Cytomegalovirus infection [Unknown]
  - Decreased appetite [Unknown]
  - Anaemia [Unknown]
